FAERS Safety Report 5700417-9 (Version None)
Quarter: 2008Q2

REPORT INFORMATION
  Report Type: 
  Country: None (occurrence: None)
  Receive Date: 20080410
  Receipt Date: 20080328
  Transmission Date: 20081010
  Serious: Yes (Other)
  Sender: FDA-Public Use
  Company Number: GB-PFIZER INC-2008024317

PATIENT
  Sex: Female
  Weight: 63.6 kg

DRUGS (6)
  1. CHAMPIX [Suspect]
     Route: 048
     Dates: start: 20071206, end: 20080218
  2. ATENOLOL [Concomitant]
     Dosage: DAILY DOSE:50MG
     Route: 048
  3. FUROSEMIDE [Concomitant]
     Dosage: DAILY DOSE:40MG
     Route: 048
  4. ACETYLSALICYLIC ACID SRT [Concomitant]
     Dosage: DAILY DOSE:75MG
     Route: 048
  5. ATORVASTATIN [Concomitant]
     Dosage: DAILY DOSE:40MG
  6. RAMIPRIL [Concomitant]
     Dosage: DAILY DOSE:10MG

REACTIONS (4)
  - ANOREXIA [None]
  - MALAISE [None]
  - NAUSEA [None]
  - WEIGHT DECREASED [None]
